FAERS Safety Report 12885346 (Version 2)
Quarter: 2016Q4

REPORT INFORMATION
  Report Type: Spontaneous
  Country: US (occurrence: US)
  Receive Date: 20161026
  Receipt Date: 20161121
  Transmission Date: 20170207
  Serious: Yes (Hospitalization, Other)
  Sender: FDA-Public Use
  Company Number: US-GLAXOSMITHKLINE-US2016157839

PATIENT
  Sex: Female

DRUGS (1)
  1. ADVAIR DISKUS [Suspect]
     Active Substance: FLUTICASONE PROPIONATE\SALMETEROL XINAFOATE
     Indication: ASTHMA
     Dosage: 1 PUFF(S), BID
     Route: 055

REACTIONS (6)
  - Radiotherapy [Unknown]
  - Hepatitis C [Recovered/Resolved]
  - Impaired work ability [Not Recovered/Not Resolved]
  - Adverse event [Unknown]
  - Breast cancer [Recovered/Resolved with Sequelae]
  - Chemotherapy [Unknown]

NARRATIVE: CASE EVENT DATE: 2002
